FAERS Safety Report 8026090-5 (Version None)
Quarter: 2012Q1

REPORT INFORMATION
  Report Type: 
  Country: None (occurrence: None)
  Receive Date: 20120105
  Receipt Date: 20110525
  Transmission Date: 20120608
  Serious: No
  Sender: FDA-Public Use
  Company Number: US-ABBOTT-11P-163-0729196-00

PATIENT
  Sex: Female
  Weight: 66.738 kg

DRUGS (6)
  1. CALCIUM ACETATE [Concomitant]
     Indication: MINERAL SUPPLEMENTATION
  2. SYNTHROID [Suspect]
     Indication: HYPOTHYROIDISM
     Dates: start: 19950101
  3. CYTOMEL [Concomitant]
     Indication: HYPOTHYROIDISM
  4. SIMVASTATIN [Concomitant]
     Indication: BLOOD CHOLESTEROL INCREASED
  5. SYNTHROID [Suspect]
  6. VIVELLE-DOT [Concomitant]
     Indication: MENOPAUSE

REACTIONS (4)
  - PRURITUS [None]
  - RASH VESICULAR [None]
  - BLOOD THYROID STIMULATING HORMONE DECREASED [None]
  - PAIN IN EXTREMITY [None]
